FAERS Safety Report 21098534 (Version 1)
Quarter: 2022Q3

REPORT INFORMATION
  Report Type: Spontaneous
  Country: US (occurrence: US)
  Receive Date: 20220719
  Receipt Date: 20220719
  Transmission Date: 20221027
  Serious: No
  Sender: FDA-Public Use
  Company Number: US-UROGEN PHARMA LTD.-2022-UGN-000059

PATIENT

DRUGS (5)
  1. JELMYTO [Suspect]
     Active Substance: MITOMYCIN
     Indication: Transitional cell cancer of the renal pelvis and ureter
     Dosage: 10 ML (MILLILITER) (INSTILLATION)
     Dates: start: 20220503, end: 20220503
  2. JELMYTO [Suspect]
     Active Substance: MITOMYCIN
     Dosage: 10 ML (MILLILITER) (INSTILLATION)
     Dates: start: 20220510, end: 20220510
  3. JELMYTO [Suspect]
     Active Substance: MITOMYCIN
     Dosage: 10 ML (MILLILITER) (INSTILLATION)
     Dates: start: 20220516, end: 20220516
  4. JELMYTO [Suspect]
     Active Substance: MITOMYCIN
     Dosage: 10 ML (MILLILITER) (INSTILLATION)
     Dates: start: 20220527, end: 20220527
  5. JELMYTO [Suspect]
     Active Substance: MITOMYCIN
     Dosage: 10 ML (MILLILITER) (INSTILLATION)
     Dates: start: 20220602, end: 20220602

REACTIONS (1)
  - Chills [Recovered/Resolved]

NARRATIVE: CASE EVENT DATE: 20220602
